FAERS Safety Report 23342855 (Version 1)
Quarter: 2023Q4

REPORT INFORMATION
  Report Type: Spontaneous
  Country: MY (occurrence: MY)
  Receive Date: 20231227
  Receipt Date: 20231227
  Transmission Date: 20240110
  Serious: Yes (Other)
  Sender: FDA-Public Use
  Company Number: MY-MYLANLABS-2023M1136951

PATIENT
  Age: 60 Year
  Sex: Male

DRUGS (1)
  1. ARIXTRA [Suspect]
     Active Substance: FONDAPARINUX SODIUM
     Indication: Acute coronary syndrome
     Dosage: 2.5 MILLIGRAM/KILOGRAM, QD
     Route: 058

REACTIONS (4)
  - Chest discomfort [Recovering/Resolving]
  - Swelling face [Recovering/Resolving]
  - Periorbital swelling [Recovering/Resolving]
  - Dyspnoea [Recovering/Resolving]
